FAERS Safety Report 5367867-4 (Version None)
Quarter: 2007Q2

REPORT INFORMATION
  Report Type: 
  Country: None (occurrence: None)
  Receive Date: 20070622
  Receipt Date: 20070615
  Transmission Date: 20071010
  Serious: Yes (Other)
  Sender: FDA-Public Use
  Company Number: GB-ELI_LILLY_AND_COMPANY-GB200706003444

PATIENT
  Age: 77 Year
  Weight: 66 kg

DRUGS (10)
  1. CYMBALTA [Suspect]
     Indication: DEPRESSION
     Dosage: 60 MG, DAILY (1/D)
     Route: 048
     Dates: start: 20070522, end: 20070531
  2. ACETYLSALICYLIC ACID SRT [Concomitant]
     Indication: MYOCARDIAL ISCHAEMIA
     Dosage: 75 MG, DAILY (1/D)
     Route: 048
     Dates: start: 19980101
  3. BUPRENORPHINE HCL [Concomitant]
     Indication: PAIN
     Dosage: 10 MG, EVERY HOUR
     Route: 061
     Dates: start: 20070508
  4. CETIRIZINE HCL [Concomitant]
     Indication: PRURITUS
     Dosage: 10 MG, DAILY (1/D)
     Route: 048
     Dates: start: 20061201
  5. CODEINE PHOSPHATE AND ACETAMINOPHEN [Concomitant]
     Indication: PAIN
     Dosage: UNK, 4/D
     Route: 048
     Dates: start: 19950101
  6. FUROSEMIDE [Concomitant]
     Dosage: 80 MG, DAILY (1/D)
     Dates: start: 20060101
  7. IRBESARTAN [Concomitant]
     Dosage: 300 UNK, DAILY (1/D)
     Dates: start: 20060101
  8. LEVOBUNOLOL HCL [Concomitant]
     Indication: GLAUCOMA
  9. OMEPRAZOLE [Concomitant]
     Dosage: 20 MG, UNK
  10. SIMVASTATIN [Concomitant]
     Dosage: 40 MG, UNK

REACTIONS (7)
  - BURNING SENSATION [None]
  - CONFUSIONAL STATE [None]
  - DISORIENTATION [None]
  - FEELING HOT [None]
  - LOSS OF CONSCIOUSNESS [None]
  - PARAESTHESIA [None]
  - SOMNOLENCE [None]
